FAERS Safety Report 20142752 (Version 1)
Quarter: 2021Q4

REPORT INFORMATION
  Report Type: Spontaneous
  Country: US (occurrence: None)
  Receive Date: 20211202
  Receipt Date: 20211202
  Transmission Date: 20220303
  Serious: No
  Sender: FDA-Public Use
  Company Number: US-ROCHE-2815685

PATIENT
  Sex: Female

DRUGS (1)
  1. LUCENTIS [Suspect]
     Active Substance: RANIBIZUMAB
     Indication: Astigmatism
     Dosage: SOLUTION 0.3MG 0.05ML
     Route: 050

REACTIONS (1)
  - Ill-defined disorder [Recovered/Resolved]
